FAERS Safety Report 9160765 (Version 1)
Quarter: 2013Q1

REPORT INFORMATION
  Report Type: Spontaneous
  Country: US (occurrence: US)
  Receive Date: 20130313
  Receipt Date: 20130313
  Transmission Date: 20140127
  Serious: Yes (Hospitalization, Other)
  Sender: FDA-Public Use
  Company Number: US-CELGENEUS-163-21880-13022785

PATIENT
  Age: 77 Year
  Sex: Male
  Weight: 83.99 kg

DRUGS (3)
  1. REVLIMID [Suspect]
     Indication: PLASMA CELL MYELOMA
     Dosage: 25 MILLIGRAM
     Route: 048
     Dates: start: 201009
  2. REVLIMID [Suspect]
     Dosage: 25 MILLIGRAM
     Route: 048
     Dates: start: 20111102
  3. ZOMETA [Concomitant]
     Indication: PLASMA CELL MYELOMA
     Dosage: .1429 MILLIGRAM
     Route: 065
     Dates: start: 201101, end: 20130111

REACTIONS (6)
  - Dementia Alzheimer^s type [Unknown]
  - Fall [Recovering/Resolving]
  - Hypotension [Recovered/Resolved]
  - Pain in extremity [Recovered/Resolved]
  - Confusional state [Unknown]
  - Pain [Unknown]
